FAERS Safety Report 17241255 (Version 1)
Quarter: 2020Q1

REPORT INFORMATION
  Report Type: Spontaneous
  Country: US (occurrence: US)
  Receive Date: 20200107
  Receipt Date: 20200107
  Transmission Date: 20200409
  Serious: No
  Sender: FDA-Public Use
  Company Number: US-HORIZON-PRO-0003-2020

PATIENT
  Age: 15 Year
  Sex: Female

DRUGS (1)
  1. PROCYSBI [Suspect]
     Active Substance: CYSTEAMINE BITARTRATE
     Indication: CYSTINOSIS
     Dosage: 12 CAPSULES ORALLY 2 TIMES A DAY
     Route: 048

REACTIONS (1)
  - Breath odour [Unknown]
